FAERS Safety Report 8915760 (Version 1)
Quarter: 2012Q4

REPORT INFORMATION
  Report Type: 
  Country: US (occurrence: US)
  Receive Date: 20121119
  Receipt Date: 20121119
  Transmission Date: 20130627
  Serious: Yes (Other)
  Sender: FDA-Public Use
  Company Number: US-PFIZER INC-2012288414

PATIENT
  Age: 68 Year
  Sex: Female
  Weight: 48.98 kg

DRUGS (3)
  1. LYRICA [Suspect]
     Indication: NEUROPATHY
     Dosage: 50 mg, daily
     Dates: start: 201203, end: 201206
  2. LYRICA [Suspect]
     Dosage: 75 mg, daily
     Dates: start: 201206
  3. ATENOLOL [Concomitant]
     Indication: BLOOD PRESSURE HIGH
     Dosage: 12.5 mg,daily

REACTIONS (5)
  - Hypertension [Unknown]
  - Erythema [Unknown]
  - Burning sensation [Unknown]
  - Oral discomfort [Unknown]
  - Somnolence [Unknown]
